FAERS Safety Report 4826711-1 (Version None)
Quarter: 2005Q4

REPORT INFORMATION
  Report Type: 
  Country: None (occurrence: None)
  Receive Date: 20051111
  Receipt Date: 20051111
  Transmission Date: 20060501
  Serious: Yes (Hospitalization, Disabling)
  Sender: FDA-Public Use
  Company Number: None

PATIENT
  Age: 4 Year
  Sex: Male
  Weight: 18 kg

DRUGS (5)
  1. METHOTREXATE [Suspect]
     Indication: ACUTE LYMPHOCYTIC LEUKAEMIA
     Dosage: 12 MG INTRATHECAL
     Route: 037
     Dates: start: 20051010
  2. VINCRISTINE [Suspect]
     Dosage: 1.1 MG IV
     Route: 042
     Dates: start: 20051010
  3. MERCAPTOPURINE [Concomitant]
  4. METHOTREXATE [Concomitant]
  5. DECADRON [Concomitant]

REACTIONS (8)
  - BODY TEMPERATURE INCREASED [None]
  - CLUMSINESS [None]
  - FALL [None]
  - HEADACHE [None]
  - INCONTINENCE [None]
  - MALAISE [None]
  - MONOPLEGIA [None]
  - URINARY INCONTINENCE [None]
